FAERS Safety Report 12078622 (Version 1)
Quarter: 2016Q1

REPORT INFORMATION
  Report Type: Spontaneous
  Country: IN (occurrence: IN)
  Receive Date: 20160216
  Receipt Date: 20160216
  Transmission Date: 20160526
  Serious: Yes (Other)
  Sender: FDA-Public Use
  Company Number: IN-HETERO LABS LTD-1047820

PATIENT
  Sex: Male

DRUGS (4)
  1. LEVOFLOXACIN. [Concomitant]
     Active Substance: LEVOFLOXACIN
     Route: 065
  2. EMANZEN D [Concomitant]
     Route: 065
  3. RABLET [Concomitant]
     Active Substance: RABEPRAZOLE
     Route: 065
  4. LINEZOLID. [Suspect]
     Active Substance: LINEZOLID
     Indication: BACTERIAL INFECTION
     Route: 065
     Dates: start: 20150819

REACTIONS (4)
  - Drug dose omission [None]
  - Depression [Unknown]
  - Product blister packaging issue [Unknown]
  - Infection [Unknown]
